FAERS Safety Report 8585814-9 (Version None)
Quarter: 2012Q3

REPORT INFORMATION
  Report Type: 
  Country: None (occurrence: None)
  Receive Date: 20120810
  Receipt Date: 20120801
  Transmission Date: 20120928
  Serious: Yes (Hospitalization, Other)
  Sender: FDA-Public Use
  Company Number: US-ELI_LILLY_AND_COMPANY-US201201006002

PATIENT
  Sex: Female

DRUGS (2)
  1. FUROSEMIDE [Concomitant]
     Indication: SWELLING
  2. FORTEO [Suspect]
     Indication: OSTEOPOROSIS
     Dosage: 20 UG, QD
     Route: 065
     Dates: start: 20110801, end: 20120619

REACTIONS (11)
  - SWELLING [None]
  - DYSPNOEA [None]
  - OEDEMA PERIPHERAL [None]
  - FATIGUE [None]
  - ARTHROPATHY [None]
  - LUNG DISORDER [None]
  - HEART VALVE INCOMPETENCE [None]
  - INJECTION SITE ERYTHEMA [None]
  - MALAISE [None]
  - HYPOXIA [None]
  - MUSCULOSKELETAL PAIN [None]
